FAERS Safety Report 4510877-7 (Version None)
Quarter: 2004Q4

REPORT INFORMATION
  Report Type: 
  Country: None (occurrence: None)
  Receive Date: 20041025
  Receipt Date: 20040226
  Transmission Date: 20050328
  Serious: Yes (Other)
  Sender: FDA-Public Use
  Company Number: NSADSS2003002277

PATIENT
  Age: 56 Year
  Sex: Female
  Weight: 117.9352 kg

DRUGS (9)
  1. REMICADE [Suspect]
     Indication: RHEUMATOID ARTHRITIS
     Dosage: SEE IMAGE
     Route: 041
     Dates: start: 20021121, end: 20021121
  2. REMICADE [Suspect]
     Indication: RHEUMATOID ARTHRITIS
     Dosage: SEE IMAGE
     Route: 041
     Dates: start: 20010608
  3. PREDNISONE [Suspect]
     Indication: RHEUMATOID ARTHRITIS
     Dosage: 5 MG
     Dates: start: 19920601
  4. METHOTREXATE [Concomitant]
  5. FELDENE [Concomitant]
  6. ULTRAM [Concomitant]
  7. ENBREL [Concomitant]
  8. PREMARIN [Concomitant]
  9. PROVERA [Concomitant]

REACTIONS (3)
  - CELLULITIS GANGRENOUS [None]
  - HAEMATOMA [None]
  - THERAPEUTIC RESPONSE DECREASED [None]
